FAERS Safety Report 5905729-1 (Version None)
Quarter: 2008Q4

REPORT INFORMATION
  Report Type: 
  Country: None (occurrence: None)
  Receive Date: 20081002
  Receipt Date: 20080924
  Transmission Date: 20090506
  Serious: Yes (Other)
  Sender: FDA-Public Use
  Company Number: US-ALLERGAN-0810428US

PATIENT
  Sex: Female

DRUGS (3)
  1. RESTASIS [Suspect]
     Indication: POSTOPERATIVE CARE
     Dosage: UNK, BID
     Route: 047
     Dates: start: 20080303, end: 20080402
  2. RESTASIS [Suspect]
     Indication: DRY EYE
  3. OPTIVE [Concomitant]

REACTIONS (2)
  - CORNEAL OPACITY [None]
  - VISUAL ACUITY REDUCED [None]
